FAERS Safety Report 9048858 (Version 1)
Quarter: 2013Q1

REPORT INFORMATION
  Report Type: Spontaneous
  Country: US (occurrence: None)
  Receive Date: 20130116
  Receipt Date: 20130116
  Transmission Date: 20140127
  Serious: Yes (Other)
  Sender: FDA-Public Use
  Company Number: 2013P000286

PATIENT
  Age: 44 Year
  Sex: Male

DRUGS (2)
  1. INFUMORPH [Suspect]
  2. BUPIVACAINE [Suspect]

REACTIONS (4)
  - Pain [None]
  - Underdose [None]
  - Device infusion issue [None]
  - Device malfunction [None]
